FAERS Safety Report 6557217-X (Version None)
Quarter: 2010Q1

REPORT INFORMATION
  Report Type: 
  Country: None (occurrence: None)
  Receive Date: 20100127
  Receipt Date: 20100127
  Transmission Date: 20100710
  Serious: Yes (Other)
  Sender: FDA-Public Use
  Company Number: None

PATIENT
  Sex: Female
  Weight: 72.5755 kg

DRUGS (2)
  1. LEVOTHROID [Suspect]
     Indication: AUTOIMMUNE THYROIDITIS
     Dosage: 1 TAB DAILY PO
     Route: 048
     Dates: start: 20100106, end: 20100126
  2. LEVOTHROID [Suspect]
     Indication: HYPOTHYROIDISM
     Dosage: 1 TAB DAILY PO
     Route: 048
     Dates: start: 20100106, end: 20100126

REACTIONS (1)
  - PRURITUS [None]
